FAERS Safety Report 21177673 (Version 1)
Quarter: 2022Q3

REPORT INFORMATION
  Report Type: Spontaneous
  Country: US (occurrence: US)
  Receive Date: 20220805
  Receipt Date: 20220805
  Transmission Date: 20221027
  Serious: No
  Sender: FDA-Public Use
  Company Number: US-PFIZER INC-PV202200035948

PATIENT
  Age: 72 Year
  Sex: Female

DRUGS (1)
  1. XELJANZ XR [Suspect]
     Active Substance: TOFACITINIB CITRATE
     Indication: Rheumatoid arthritis
     Dosage: 11 MG, 1X/DAY (FOR 1 WEEK)

REACTIONS (5)
  - Acne [Unknown]
  - Herpes zoster [Unknown]
  - Condition aggravated [Unknown]
  - Erythema [Unknown]
  - Pruritus [Unknown]
